FAERS Safety Report 6699271-0 (Version None)
Quarter: 2010Q2

REPORT INFORMATION
  Report Type: 
  Country: None (occurrence: None)
  Receive Date: 20100427
  Receipt Date: 20100419
  Transmission Date: 20101027
  Serious: Yes (Other)
  Sender: FDA-Public Use
  Company Number: US-ABBOTT-10P-163-0639977-00

PATIENT

DRUGS (1)
  1. NORVIR [Suspect]
     Indication: HIV INFECTION

REACTIONS (5)
  - CARDIAC MURMUR [None]
  - CHEST PAIN [None]
  - HEART RATE INCREASED [None]
  - HEART VALVE INCOMPETENCE [None]
  - SUPRAVENTRICULAR TACHYCARDIA [None]
